FAERS Safety Report 18483509 (Version 1)
Quarter: 2020Q4

REPORT INFORMATION
  Report Type: Spontaneous
  Country: US (occurrence: US)
  Receive Date: 20201109
  Receipt Date: 20201109
  Transmission Date: 20210114
  Serious: No
  Sender: FDA-Public Use
  Company Number: US-ROCHE-2629068

PATIENT
  Sex: Male

DRUGS (1)
  1. PULMOZYME [Suspect]
     Active Substance: DORNASE ALFA
     Indication: PRODUCT USED FOR UNKNOWN INDICATION
     Dosage: 2.5 MG DAILY RESPIRATORY (INHALATION) ONGOING: YES
     Route: 065

REACTIONS (3)
  - Pruritus [Unknown]
  - Neuralgia [Unknown]
  - Hypoaesthesia [Unknown]
